FAERS Safety Report 6910385-X (Version None)
Quarter: 2010Q3

REPORT INFORMATION
  Report Type: 
  Country: None (occurrence: None)
  Receive Date: 20100806
  Receipt Date: 20100803
  Transmission Date: 20110219
  Serious: Yes (Hospitalization)
  Sender: FDA-Public Use
  Company Number: BE-BRISTOL-MYERS SQUIBB COMPANY-15043300

PATIENT
  Age: 18 Year
  Sex: Female

DRUGS (1)
  1. APROVEL [Suspect]
     Dates: end: 20100201

REACTIONS (4)
  - CONVULSION [None]
  - HAEMORRHAGE [None]
  - PETECHIAE [None]
  - PREGNANCY [None]
